FAERS Safety Report 20278050 (Version 1)
Quarter: 2022Q1

REPORT INFORMATION
  Report Type: Spontaneous
  Country: FR (occurrence: FR)
  Receive Date: 20220103
  Receipt Date: 20220103
  Transmission Date: 20220423
  Serious: Yes (Hospitalization)
  Sender: FDA-Public Use
  Company Number: FR-AFSSAPS-TO20219276

PATIENT
  Age: 80 Year
  Sex: Male
  Weight: 66 kg

DRUGS (2)
  1. SERTRALINE [Suspect]
     Active Substance: SERTRALINE HYDROCHLORIDE
     Indication: Affective disorder
     Dosage: 50 MILLIGRAM, DAILY
     Route: 048
     Dates: start: 20210723
  2. RISPERDAL [Suspect]
     Active Substance: RISPERIDONE
     Indication: Brief psychotic disorder with marked stressors
     Dosage: 1 DOSAGE FORM, DAILY, 2MG/J
     Route: 048
     Dates: start: 20210827

REACTIONS (1)
  - Atrial fibrillation [Recovering/Resolving]

NARRATIVE: CASE EVENT DATE: 20210902
